FAERS Safety Report 5050649-0 (Version None)
Quarter: 2006Q3

REPORT INFORMATION
  Report Type: 
  Country: None (occurrence: None)
  Receive Date: 20060710
  Receipt Date: 20060623
  Transmission Date: 20061208
  Serious: Yes (Hospitalization)
  Sender: FDA-Public Use
  Company Number: 226991

PATIENT
  Age: 42 Year
  Sex: Female

DRUGS (1)
  1. HERCEPTIN [Suspect]

REACTIONS (2)
  - PLATELET COUNT DECREASED [None]
  - PURPURA [None]
